FAERS Safety Report 4334720-4 (Version None)
Quarter: 2004Q2

REPORT INFORMATION
  Report Type: 
  Country: None (occurrence: None)
  Receive Date: 20040405
  Receipt Date: 20040324
  Transmission Date: 20050107
  Serious: Yes (Other)
  Sender: FDA-Public Use
  Company Number: US-JNJFOC-20040305971

PATIENT
  Sex: Female

DRUGS (5)
  1. REMICADE [Suspect]
     Indication: CROHN'S DISEASE
     Dosage: INTRAVENOUS
     Route: 042
     Dates: start: 20040323
  2. MEDROL [Concomitant]
  3. ZYRTEC [Concomitant]
  4. ZANTAC [Concomitant]
  5. TYLENOL [Concomitant]

REACTIONS (2)
  - FLUSHING [None]
  - MUSCLE SPASMS [None]
